FAERS Safety Report 6397345-5 (Version None)
Quarter: 2009Q4

REPORT INFORMATION
  Report Type: 
  Country: None (occurrence: None)
  Receive Date: 20091012
  Receipt Date: 20091006
  Transmission Date: 20100525
  Serious: Yes (Death, Hospitalization)
  Sender: FDA-Public Use
  Company Number: US-BRISTOL-MYERS SQUIBB COMPANY-14780324

PATIENT
  Age: 74 Year
  Sex: Female
  Weight: 63 kg

DRUGS (4)
  1. ERBITUX [Suspect]
     Indication: NON-SMALL CELL LUNG CANCER
     Dosage: TOTAL NUMBER OF COURSE:8 ALSO ON 21JUL09;250MG/M2 REMOVED FROM THE PROTOCOL ON 24-JUL-2009
     Route: 042
     Dates: start: 20090602, end: 20090721
  2. CARBOPLATIN [Suspect]
     Indication: NON-SMALL CELL LUNG CANCER
     Dosage: 1 DF = AUC 2 TOTAL NUMBER OF COURSE:8;ALSO ON 21JUL09; REMOVED FROM THE PROTOCOL ON 24-JUL-2009
     Route: 042
     Dates: start: 20090602, end: 20090721
  3. TAXOL [Suspect]
     Indication: NON-SMALL CELL LUNG CANCER
     Dosage: TOTAL NUMBER OF COURSE:8;45MG/M2 ALSO ON 21JUL09; REMOVED FROM THE PROTOCOL ON 24-JUL-2009
     Route: 042
     Dates: start: 20090602, end: 20090721
  4. RADIATION THERAPY [Suspect]
     Indication: NON-SMALL CELL LUNG CANCER
     Dosage: 1 DF = 66GY (TOTAL DOSE) IN 33 AND 46 DAYS REMOVED FROM THE PROTOCOL ON 24-JUL-2009
     Dates: end: 20090724

REACTIONS (1)
  - PULMONARY EMBOLISM [None]
